FAERS Safety Report 8426472-3 (Version None)
Quarter: 2012Q2

REPORT INFORMATION
  Report Type: 
  Country: None (occurrence: None)
  Receive Date: 20120611
  Receipt Date: 20120529
  Transmission Date: 20120825
  Serious: Yes (Other)
  Sender: FDA-Public Use
  Company Number: BR-AMGEN-BRASP2012031835

PATIENT
  Age: 58 Year
  Sex: Female
  Weight: 51 kg

DRUGS (3)
  1. ENBREL [Suspect]
     Indication: PSORIASIS
     Dosage: 25 MG, 2X/WEEK
     Route: 058
     Dates: start: 20091001
  2. CALCIUM [Concomitant]
     Indication: BONE DISORDER
     Dosage: UNK
  3. TRILEPTAL [Concomitant]
     Indication: VEIN DISORDER
     Dosage: UNK

REACTIONS (4)
  - PIGMENTATION DISORDER [None]
  - ABDOMINAL DISTENSION [None]
  - HEPATOMEGALY [None]
  - PRURITUS [None]
